FAERS Safety Report 8228302-1 (Version None)
Quarter: 2012Q1

REPORT INFORMATION
  Report Type: 
  Country: None (occurrence: None)
  Receive Date: 20120322
  Receipt Date: 20111004
  Transmission Date: 20120608
  Serious: No
  Sender: FDA-Public Use
  Company Number: US-BRISTOL-MYERS SQUIBB COMPANY-16130304

PATIENT
  Age: 49 Year
  Sex: Male

DRUGS (1)
  1. ERBITUX [Suspect]
     Indication: HEAD AND NECK CANCER
     Dosage: NO OF DOSES 4

REACTIONS (2)
  - CHILLS [None]
  - TREMOR [None]
